FAERS Safety Report 6048003-8 (Version None)
Quarter: 2009Q1

REPORT INFORMATION
  Report Type: 
  Country: None (occurrence: None)
  Receive Date: 20090123
  Receipt Date: 20090115
  Transmission Date: 20090719
  Serious: Yes (Other)
  Sender: FDA-Public Use
  Company Number: CA-ASTRAZENECA-2009UW01537

PATIENT
  Age: 75 Year
  Sex: Male

DRUGS (7)
  1. ATACAND [Suspect]
     Route: 048
  2. EXELON [Suspect]
  3. ANTIPSYCHOTIC [Concomitant]
  4. ANXIOLYTIC [Concomitant]
  5. LIPITOR [Concomitant]
  6. NITROGLYCERIN [Concomitant]
  7. SEROQUEL [Concomitant]
     Route: 048

REACTIONS (7)
  - ATRIOVENTRICULAR BLOCK [None]
  - BALANCE DISORDER [None]
  - BRADYCARDIA [None]
  - DIZZINESS POSTURAL [None]
  - ORTHOSTATIC HYPOTENSION [None]
  - PRESYNCOPE [None]
  - SICK SINUS SYNDROME [None]
